FAERS Safety Report 5728829-8 (Version None)
Quarter: 2008Q2

REPORT INFORMATION
  Report Type: 
  Country: None (occurrence: None)
  Receive Date: 20080506
  Receipt Date: 20080428
  Transmission Date: 20081010
  Serious: Yes (Death, Hospitalization, Disabling, Other)
  Sender: FDA-Public Use
  Company Number: ES-ELI_LILLY_AND_COMPANY-ES200804007299

PATIENT
  Age: 79 Year
  Sex: Female

DRUGS (10)
  1. FORTEO [Suspect]
     Indication: OSTEOPOROSIS
     Dosage: 20 UG, UNKNOWN
     Route: 058
     Dates: start: 20071108, end: 20080301
  2. CHOLESTEROL- AND TRIGLYCERIDE REDUCERS [Concomitant]
     Dosage: UNK, UNKNOWN
     Route: 065
  3. FENTANYL [Concomitant]
     Dosage: UNK, UNKNOWN
     Route: 065
  4. PLAVIX [Concomitant]
     Dosage: UNK, UNKNOWN
     Route: 065
  5. DIANBEN [Concomitant]
     Dosage: UNK, UNKNOWN
     Route: 065
  6. NATECAL D [Concomitant]
     Dosage: UNK, UNKNOWN
     Route: 065
  7. ANALGESICS [Concomitant]
     Dosage: UNK, UNKNOWN
     Route: 065
  8. ADOLONTA [Concomitant]
     Dosage: UNK, UNKNOWN
     Route: 065
  9. NOLOTIL [Concomitant]
     Dosage: UNK, UNKNOWN
     Route: 065
  10. PARACETAMOL [Concomitant]
     Dosage: UNK, UNKNOWN
     Route: 065

REACTIONS (4)
  - CERVICAL SPINAL STENOSIS [None]
  - DISABILITY [None]
  - SEPSIS [None]
  - WOUND INFECTION [None]
